FAERS Safety Report 12317473 (Version 1)
Quarter: 2016Q2

REPORT INFORMATION
  Report Type: Spontaneous
  Country: US (occurrence: US)
  Receive Date: 20160429
  Receipt Date: 20160429
  Transmission Date: 20160815
  Serious: Yes (Other)
  Sender: FDA-Public Use
  Company Number: US-PFIZER INC-2016227605

PATIENT
  Sex: Male

DRUGS (2)
  1. DEPO-MEDROL [Suspect]
     Active Substance: METHYLPREDNISOLONE ACETATE
     Indication: BACK PAIN
     Dosage: UNK
     Route: 008
     Dates: start: 20140402, end: 20140402
  2. DEPO-MEDROL [Suspect]
     Active Substance: METHYLPREDNISOLONE ACETATE
     Dosage: UNK
     Route: 008
     Dates: start: 20140507, end: 20140507

REACTIONS (2)
  - Incorrect route of drug administration [Unknown]
  - Arachnoiditis [Unknown]

NARRATIVE: CASE EVENT DATE: 20140507
